FAERS Safety Report 21752590 (Version 6)
Quarter: 2024Q2

REPORT INFORMATION
  Report Type: Spontaneous
  Country: DE (occurrence: DE)
  Receive Date: 20221220
  Receipt Date: 20240603
  Transmission Date: 20240716
  Serious: Yes (Other)
  Sender: FDA-Public Use
  Company Number: DE-ROCHE-3244869

PATIENT
  Age: 56 Year
  Sex: Male

DRUGS (25)
  1. POLIVY [Suspect]
     Active Substance: POLATUZUMAB VEDOTIN-PIIQ
     Indication: Diffuse large B-cell lymphoma
     Route: 065
     Dates: start: 20200331, end: 20200416
  2. POLIVY [Suspect]
     Active Substance: POLATUZUMAB VEDOTIN-PIIQ
     Dosage: MOST RECENT DOSE ADMINISTERED ON 01/DEC/2022
     Route: 065
     Dates: start: 20220201
  3. VENETOCLAX [Suspect]
     Active Substance: VENETOCLAX
     Indication: Diffuse large B-cell lymphoma
     Dosage: UNK, FORMULATION UNKNOWN
     Route: 065
  4. VENETOCLAX [Suspect]
     Active Substance: VENETOCLAX
     Route: 065
  5. REVLIMID [Suspect]
     Active Substance: LENALIDOMIDE
     Indication: Diffuse large B-cell lymphoma
     Route: 065
  6. IMBRUVICA [Suspect]
     Active Substance: IBRUTINIB
     Indication: Diffuse large B-cell lymphoma
     Dosage: UNK, MOST RECENT DOSE ADMINISTERED ON 30/MAR/2020
     Route: 065
     Dates: start: 20200316
  7. TRUXIMA [Suspect]
     Active Substance: RITUXIMAB-ABBS
     Indication: Diffuse large B-cell lymphoma
     Route: 065
     Dates: start: 20191201, end: 20200101
  8. TRUXIMA [Suspect]
     Active Substance: RITUXIMAB-ABBS
     Dosage: MOST RECENT DOSE ADMINISTERED ON 01/DEC/2022
     Route: 065
     Dates: start: 20220201
  9. TRUXIMA [Suspect]
     Active Substance: RITUXIMAB-ABBS
     Route: 065
     Dates: start: 20190501, end: 20190901
  10. TRUXIMA [Suspect]
     Active Substance: RITUXIMAB-ABBS
     Route: 065
     Dates: start: 20200101, end: 20200201
  11. TRUXIMA [Suspect]
     Active Substance: RITUXIMAB-ABBS
     Route: 065
     Dates: start: 20200331, end: 20200416
  12. MONJUVI [Suspect]
     Active Substance: TAFASITAMAB-CXIX
     Indication: Diffuse large B-cell lymphoma
     Route: 065
  13. MONJUVI [Suspect]
     Active Substance: TAFASITAMAB-CXIX
     Route: 065
  14. BENDAMUSTINE HYDROCHLORIDE [Suspect]
     Active Substance: BENDAMUSTINE HYDROCHLORIDE
     Indication: Diffuse large B-cell lymphoma
     Dosage: UNK UNK, CYCLIC
     Route: 065
     Dates: start: 20200331, end: 20200416
  15. BENDAMUSTINE HYDROCHLORIDE [Suspect]
     Active Substance: BENDAMUSTINE HYDROCHLORIDE
     Dosage: UNK UNK, CYCLIC, MOST RECENT DOSE ADMINISTERED ON 01/DEC/2022
     Route: 065
     Dates: start: 20220201
  16. VINCRISTINE SULFATE [Suspect]
     Active Substance: VINCRISTINE SULFATE
     Indication: Diffuse large B-cell lymphoma
     Route: 065
     Dates: start: 20190501, end: 20190901
  17. VINCRISTINE SULFATE [Suspect]
     Active Substance: VINCRISTINE SULFATE
     Route: 065
  18. ETOPOSIDE [Suspect]
     Active Substance: ETOPOSIDE
     Indication: Diffuse large B-cell lymphoma
     Route: 065
     Dates: start: 20190501, end: 20190901
  19. ETOPOSIDE [Suspect]
     Active Substance: ETOPOSIDE
     Route: 065
  20. CYCLOPHOSPHAMIDE [Suspect]
     Active Substance: CYCLOPHOSPHAMIDE
     Indication: Diffuse large B-cell lymphoma
     Route: 065
     Dates: start: 20190501, end: 20190901
  21. CYCLOPHOSPHAMIDE [Suspect]
     Active Substance: CYCLOPHOSPHAMIDE
     Route: 065
  22. PREDNISONE [Suspect]
     Active Substance: PREDNISONE
     Indication: Diffuse large B-cell lymphoma
     Route: 065
     Dates: start: 20190501, end: 20190901
  23. PREDNISONE [Suspect]
     Active Substance: PREDNISONE
     Route: 065
  24. DOXORUBICIN HYDROCHLORIDE [Suspect]
     Active Substance: DOXORUBICIN HYDROCHLORIDE
     Indication: Diffuse large B-cell lymphoma
     Route: 065
     Dates: start: 20190501, end: 20190901
  25. DOXORUBICIN HYDROCHLORIDE [Suspect]
     Active Substance: DOXORUBICIN HYDROCHLORIDE
     Route: 065

REACTIONS (1)
  - Lymphoma [Unknown]
